FAERS Safety Report 6795793-2 (Version None)
Quarter: 2010Q2

REPORT INFORMATION
  Report Type: 
  Country: None (occurrence: None)
  Receive Date: 20100625
  Receipt Date: 20100617
  Transmission Date: 20101027
  Serious: Yes (Other)
  Sender: FDA-Public Use
  Company Number: GXKR2010FR06698

PATIENT
  Age: 14 Year
  Sex: Male

DRUGS (6)
  1. AMLODIPINE [Suspect]
     Indication: HYPERTENSION
     Dosage: 10 MG/DAY
     Route: 065
  2. AMLODIPINE [Interacting]
     Dosage: 30 MG/DAY
     Route: 065
  3. TACROLIMUS [Interacting]
     Dosage: 0.1 MG/KG/DAY
     Route: 065
  4. TACROLIMUS [Interacting]
     Dosage: REDUCED BY ONE THIRD
     Route: 065
  5. AZATHIOPRINE [Concomitant]
     Dosage: 2 MG/KG, QD
     Route: 065
  6. STEROIDS NOS [Concomitant]
     Dosage: LOW DOSE
     Route: 065

REACTIONS (5)
  - DRUG INTERACTION [None]
  - HAEMODIALYSIS [None]
  - HYPERTENSION [None]
  - OLIGURIA [None]
  - RENAL FAILURE ACUTE [None]
